FAERS Safety Report 5662945-4 (Version None)
Quarter: 2008Q1

REPORT INFORMATION
  Report Type: 
  Country: None (occurrence: None)
  Receive Date: 20080307
  Receipt Date: 20080226
  Transmission Date: 20080703
  Serious: Yes (Hospitalization)
  Sender: FDA-Public Use
  Company Number: PAR_02128_2008

PATIENT
  Sex: Female
  Weight: 42.1845 kg

DRUGS (10)
  1. MEGACE ES [Suspect]
     Indication: DECREASED APPETITE
     Dosage: 1 DF QD 625 MG/5 ML ORAL
     Route: 048
     Dates: start: 20070801, end: 20080101
  2. CELEBREX [Concomitant]
  3. CLORAZEPATE [Concomitant]
  4. VITAMIN B12 NOS [Concomitant]
  5. METHOTREXATE [Concomitant]
  6. FOSAMAX [Concomitant]
  7. FOLIC ACID [Concomitant]
  8. VITAMIN CAP [Concomitant]
  9. CALCIUM [Concomitant]
  10. HYDROCODONE BITARTRATE [Concomitant]

REACTIONS (5)
  - ALOPECIA [None]
  - FALL [None]
  - HAEMORRHAGE [None]
  - HIP FRACTURE [None]
  - VAGINAL HAEMORRHAGE [None]
